FAERS Safety Report 12841737 (Version 1)
Quarter: 2016Q4

REPORT INFORMATION
  Report Type: Spontaneous
  Country: US (occurrence: US)
  Receive Date: 20161012
  Receipt Date: 20161012
  Transmission Date: 20170207
  Serious: Yes (Other)
  Sender: FDA-Public Use
  Company Number: US-TEVA-701956USA

PATIENT
  Sex: Female

DRUGS (1)
  1. ZECUITY [Suspect]
     Active Substance: SUMATRIPTAN SUCCINATE
     Route: 062

REACTIONS (10)
  - Application site discolouration [Not Recovered/Not Resolved]
  - Nausea [Recovered/Resolved]
  - Application site discomfort [Recovered/Resolved]
  - Application site rash [Not Recovered/Not Resolved]
  - Application site erythema [Not Recovered/Not Resolved]
  - Application site pain [Recovered/Resolved]
  - Application site paraesthesia [Unknown]
  - Application site burn [Not Recovered/Not Resolved]
  - Fatigue [Unknown]
  - Application site pain [Unknown]
